FAERS Safety Report 6248146-X (Version None)
Quarter: 2009Q2

REPORT INFORMATION
  Report Type: 
  Country: None (occurrence: None)
  Receive Date: 20090624
  Receipt Date: 20090624
  Transmission Date: 20091009
  Serious: No
  Sender: FDA-Public Use
  Company Number: None

PATIENT
  Sex: Female
  Weight: 68.0396 kg

DRUGS (1)
  1. CEPHALEXIN [Suspect]
     Indication: CYST
     Dosage: 500 MG- 1 DAP. 4 X Q DAY BY MOUTH
     Route: 048
     Dates: start: 20090602, end: 20090609

REACTIONS (2)
  - PAIN [None]
  - RESTLESSNESS [None]
